FAERS Safety Report 23926452 (Version 4)
Quarter: 2024Q2

REPORT INFORMATION
  Report Type: Spontaneous
  Country: PT (occurrence: PT)
  Receive Date: 20240531
  Receipt Date: 20240617
  Transmission Date: 20240715
  Serious: Yes (Hospitalization)
  Sender: FDA-Public Use
  Company Number: PT-JNJFOC-20240575787

PATIENT
  Age: 23 Year
  Sex: Male

DRUGS (5)
  1. PALIPERIDONE [Suspect]
     Active Substance: PALIPERIDONE
     Indication: Mental disorder
     Dosage: 9 MG, PER DAY
     Route: 048
  2. ZOLPIDEM [Suspect]
     Active Substance: ZOLPIDEM TARTRATE
     Indication: Mental disorder
     Route: 065
  3. MEXAZOLAM [Suspect]
     Active Substance: MEXAZOLAM
     Indication: Mental disorder
     Route: 065
  4. ZOLPIDEM [Concomitant]
     Active Substance: ZOLPIDEM TARTRATE
  5. MEXAZOLAM [Concomitant]
     Active Substance: MEXAZOLAM

REACTIONS (1)
  - Hypogammaglobulinaemia [Recovering/Resolving]
